FAERS Safety Report 7450130-5 (Version None)
Quarter: 2011Q2

REPORT INFORMATION
  Report Type: 
  Country: None (occurrence: None)
  Receive Date: 20110421
  Receipt Date: 20110406
  Transmission Date: 20111010
  Serious: Yes (Hospitalization)
  Sender: FDA-Public Use
  Company Number: 1000020108

PATIENT
  Age: 33 Year
  Sex: Female
  Weight: 95 kg

DRUGS (7)
  1. LISINOPRIL [Suspect]
     Dosage: ORAL; 350 MG, ONCE, ORAL
     Route: 048
     Dates: start: 20110214, end: 20110214
  2. ESCITALOPRAM [Suspect]
     Dosage: 40 MG (40 MG, 1 IN 1D), ORAL; 1.4 GM, ONCE, ORAL
     Route: 048
     Dates: start: 20110214, end: 20110214
  3. ATORVASTATIN CALCIUM [Suspect]
     Dosage: ORAL; 8 GM, ONCE, ORAL
     Route: 048
     Dates: start: 20110214, end: 20110214
  4. LORAZEPAM [Suspect]
     Dosage: 7.5 MG (2.5 MG, 3 IN 1 D), ORAL; 50 MG, ONCE, ORAL
     Route: 048
     Dates: start: 20110214, end: 20110214
  5. FLURAZEPAM HYDROCHLORIDE [Suspect]
     Dosage: 30 MG (30 MG, 1 IN 1 D), ORAL; 750 MG, ONCE, ORAL
     Route: 048
     Dates: start: 20110214, end: 20110214
  6. SEROQUEL [Suspect]
     Dosage: 1400 MG (1400 MG, 1 IN 1 D), ORAL; (52 GM, ONCE), ORAL
     Route: 048
     Dates: start: 20110214, end: 20110214
  7. POTASSIUM CHLORIDE [Suspect]
     Dosage: ORAL; 470 MILLIGRAM, ONCE, ORAL
     Route: 048
     Dates: start: 20110214, end: 20110214

REACTIONS (14)
  - DIABETIC COMPLICATION [None]
  - TACHYCARDIA [None]
  - HYPOTENSION [None]
  - HAEMODYNAMIC INSTABILITY [None]
  - MYDRIASIS [None]
  - VOMITING [None]
  - MULTIPLE DRUG OVERDOSE INTENTIONAL [None]
  - HYPERKALAEMIA [None]
  - BLOOD GLUCOSE INCREASED [None]
  - LOSS OF CONSCIOUSNESS [None]
  - HYPERTHERMIA [None]
  - RHABDOMYOLYSIS [None]
  - METABOLIC ACIDOSIS [None]
  - ASPIRATION BRONCHIAL [None]
